FAERS Safety Report 14978796 (Version 2)
Quarter: 2018Q2

REPORT INFORMATION
  Report Type: Spontaneous
  Country: FR (occurrence: FR)
  Receive Date: 20180606
  Receipt Date: 20180613
  Transmission Date: 20180711
  Serious: Yes (Other)
  Sender: FDA-Public Use
  Company Number: FR-ABBVIE-18P-056-2336931-00

PATIENT
  Age: 9 Year
  Sex: Female

DRUGS (2)
  1. ENANTONE LP [Suspect]
     Active Substance: LEUPROLIDE ACETATE
     Indication: PRECOCIOUS PUBERTY
     Dosage: 11.25 MG, UNK
     Route: 065
     Dates: start: 20180126
  2. ENANTONE LP [Suspect]
     Active Substance: LEUPROLIDE ACETATE
     Dosage: 11.25 MG, UNK
     Route: 065
     Dates: start: 20180430

REACTIONS (12)
  - Oedema [Unknown]
  - Epiphyseal fracture [Unknown]
  - Fall [Unknown]
  - Epiphyseal disorder [Unknown]
  - Complex regional pain syndrome [Unknown]
  - Affective disorder [Unknown]
  - Headache [Unknown]
  - Decreased appetite [Unknown]
  - Migraine [Unknown]
  - Agitation [Unknown]
  - Bone density decreased [Unknown]
  - Anxiety [Unknown]

NARRATIVE: CASE EVENT DATE: 20180410
